FAERS Safety Report 9588257 (Version 1)
Quarter: 2013Q4

REPORT INFORMATION
  Report Type: Spontaneous
  Country: US (occurrence: US)
  Receive Date: 20131003
  Receipt Date: 20131003
  Transmission Date: 20140711
  Serious: No
  Sender: FDA-Public Use
  Company Number: US-AMGEN-USASP2012063310

PATIENT
  Age: 65 Year
  Sex: Male
  Weight: 126.98 kg

DRUGS (20)
  1. ENBREL [Suspect]
     Indication: PRODUCT USED FOR UNKNOWN INDICATION
     Dosage: 50 MG, QWK
     Route: 058
  2. METFORMIN [Concomitant]
     Dosage: 1000 MG, UNK
  3. VITAMIN D                          /00107901/ [Concomitant]
     Dosage: 1000 UNIT, UNK
  4. HYDROCHLOROTH [Concomitant]
     Dosage: 25 MG, UNK
  5. VITAMIN B1 [Concomitant]
     Dosage: 100 MG, UNK
  6. CALCIUM [Concomitant]
     Dosage: 500 UNK, UNK
  7. VITAMIN B12                        /00056201/ [Concomitant]
     Dosage: 1000 CR UNK, UNK
  8. COENZYME Q10 [Concomitant]
     Dosage: 10 MG, UNK
  9. VITAMIN D3 [Concomitant]
     Dosage: UNK
  10. VITAMIN E                          /00110501/ [Concomitant]
     Dosage: 1000 UNIT, UNK
  11. FOLIC ACID [Concomitant]
     Dosage: UNK
  12. GARLIC                             /01570501/ [Concomitant]
     Dosage: 10 MG, UNK
  13. VITAMIN B6 [Concomitant]
     Dosage: 250 MG, UNK
  14. GLIPIZIDE [Concomitant]
     Dosage: 10 MG, UNK
  15. MAGNESIUM GLUCONATE [Concomitant]
     Dosage: 550 MG, UNK
  16. POTASSIUM GLUCONATE [Concomitant]
     Dosage: 2.5 MEQ, UNK
  17. PRAVASTATIN [Concomitant]
     Dosage: 40 MG, UNK
  18. VITAMIN B [Concomitant]
     Dosage: UNK
  19. NIACIN [Concomitant]
     Dosage: 400 MG, UNK
  20. OMEPRAZOLE [Concomitant]
     Dosage: 20 MG, UNK

REACTIONS (2)
  - Injection site erythema [Unknown]
  - Injection site pain [Unknown]
